FAERS Safety Report 9046563 (Version 1)
Quarter: 2013Q1

REPORT INFORMATION
  Report Type: Spontaneous
  Country: US (occurrence: None)
  Receive Date: 20130128
  Receipt Date: 20130128
  Transmission Date: 20140127
  Serious: Yes (Other)
  Sender: FDA-Public Use
  Company Number: None

PATIENT
  Age: 61 Year
  Sex: Female
  Weight: 61.24 kg

DRUGS (4)
  1. MUCINEX DM [Suspect]
     Indication: COUGH
     Route: 048
     Dates: start: 20121201, end: 20121201
  2. MUCINEX DM [Suspect]
     Indication: NASOPHARYNGITIS
     Route: 048
     Dates: start: 20121201, end: 20121201
  3. MUCINEX DM [Suspect]
     Indication: RESPIRATORY TRACT CONGESTION
     Route: 048
     Dates: start: 20121201, end: 20121201
  4. MUCINEX DM [Suspect]
     Route: 048
     Dates: start: 20130120, end: 20130120

REACTIONS (9)
  - Disorientation [None]
  - Dizziness [None]
  - Feeling abnormal [None]
  - Disturbance in attention [None]
  - Disturbance in attention [None]
  - Memory impairment [None]
  - Product quality issue [None]
  - Product tampering [None]
  - No reaction on previous exposure to drug [None]
